FAERS Safety Report 22612530 (Version 2)
Quarter: 2023Q2

REPORT INFORMATION
  Report Type: Report from Study
  Country: US (occurrence: US)
  Receive Date: 20230617
  Receipt Date: 20230623
  Transmission Date: 20230722
  Serious: Yes (Other)
  Sender: FDA-Public Use
  Company Number: US-TEVA-2023-US-2896214

PATIENT
  Age: 39 Year
  Sex: Female

DRUGS (1)
  1. AUSTEDO XR [Suspect]
     Active Substance: DEUTETRABENAZINE
     Indication: Huntington^s disease
     Dosage: 12 MILLIGRAM DAILY;
     Route: 048
     Dates: start: 20230605

REACTIONS (7)
  - Mental impairment [Unknown]
  - Tearfulness [Unknown]
  - Feeling abnormal [Unknown]
  - Stress [Unknown]
  - Brain fog [Unknown]
  - Fall [Unknown]
  - Drug titration error [Unknown]

NARRATIVE: CASE EVENT DATE: 20230101
